FAERS Safety Report 8371725-0 (Version None)
Quarter: 2012Q2

REPORT INFORMATION
  Report Type: 
  Country: None (occurrence: None)
  Receive Date: 20120518
  Receipt Date: 20120508
  Transmission Date: 20120825
  Serious: Yes (Hospitalization)
  Sender: FDA-Public Use
  Company Number: US-BAXTER-2012BAX000319

PATIENT
  Sex: Male

DRUGS (3)
  1. PLAVIX [Concomitant]
     Indication: ANTICOAGULANT THERAPY
     Route: 065
  2. DIANEAL [Suspect]
     Route: 033
  3. DIANEAL [Suspect]
     Indication: PERITONEAL DIALYSIS
     Route: 033

REACTIONS (3)
  - CONFUSIONAL STATE [None]
  - ANXIETY [None]
  - FALL [None]
